FAERS Safety Report 14126835 (Version 1)
Quarter: 2017Q4

REPORT INFORMATION
  Report Type: Spontaneous
  Country: US (occurrence: US)
  Receive Date: 20171025
  Receipt Date: 20171025
  Transmission Date: 20180321
  Serious: No
  Sender: FDA-Public Use
  Company Number: US-MYLANLABS-2017M1056598

PATIENT
  Sex: Female

DRUGS (1)
  1. INDOMETHACIN CAPSULES, USP [Suspect]
     Active Substance: INDOMETHACIN
     Indication: PRODUCT USED FOR UNKNOWN INDICATION
     Dosage: 50 MG, TID

REACTIONS (8)
  - Arthralgia [Unknown]
  - Hypertension [Unknown]
  - Joint warmth [Unknown]
  - Tenderness [Unknown]
  - Joint range of motion decreased [Unknown]
  - Tinel^s sign [Unknown]
  - Fatigue [Unknown]
  - Joint swelling [Unknown]
